FAERS Safety Report 16069562 (Version 1)
Quarter: 2019Q1

REPORT INFORMATION
  Report Type: Spontaneous
  Country: SE (occurrence: SE)
  Receive Date: 20190314
  Receipt Date: 20190314
  Transmission Date: 20190418
  Serious: Yes (Hospitalization)
  Sender: FDA-Public Use
  Company Number: SE-TEVA-2019-SE-1022600

PATIENT
  Age: 46 Year
  Sex: Female

DRUGS (21)
  1. CLOZAPINE SANDOZ [Suspect]
     Active Substance: CLOZAPINE
     Dosage: 100 MG 2+3
     Dates: start: 20180120, end: 20180121
  2. EGAZIL [Concomitant]
     Active Substance: HYOSCYAMINE SULFATE
  3. PREGABALIN. [Concomitant]
     Active Substance: PREGABALIN
  4. TEMESTA [Concomitant]
  5. CLOZAPINE ACTAVIS 25 MG TABLETT [Suspect]
     Active Substance: CLOZAPINE
     Indication: SCHIZOAFFECTIVE DISORDER DEPRESSIVE TYPE
     Dosage: 50 MILLIGRAM DAILY; 25 MG 2 KL 20
     Route: 048
     Dates: start: 20180703, end: 20190118
  6. SIMVASTATIN. [Concomitant]
     Active Substance: SIMVASTATIN
  7. CLOZAPINE SANDOZ [Suspect]
     Active Substance: CLOZAPINE
     Dosage: 100 MG 2+3
     Dates: start: 20180103
  8. ZOPICLONE [Concomitant]
     Active Substance: ZOPICLONE
  9. ESOMEPRAZOLE. [Concomitant]
     Active Substance: ESOMEPRAZOLE MAGNESIUM
  10. CLOZAPINE SANDOZ [Suspect]
     Active Substance: CLOZAPINE
     Dosage: 100 MG 2+3
     Dates: start: 20180704, end: 20190128
  11. CLOZAPINE ACCORD 100 MG TABLETT [Suspect]
     Active Substance: CLOZAPINE
     Indication: SCHIZOAFFECTIVE DISORDER DEPRESSIVE TYPE
     Dosage: 400 MILLIGRAM DAILY; 100 MG 2+2
     Route: 048
     Dates: start: 20190128
  12. METFORMIN [Concomitant]
     Active Substance: METFORMIN HYDROCHLORIDE
  13. ALPRAZOLAM. [Concomitant]
     Active Substance: ALPRAZOLAM
  14. IMPORTAL EX-LAX [Concomitant]
  15. CLOZAPINE SANDOZ [Suspect]
     Active Substance: CLOZAPINE
     Dosage: 100 MG 2 + 3 SAMT 25 MG 2X1
     Dates: start: 20180104, end: 20180119
  16. PARGITAN [Concomitant]
     Active Substance: TRIHEXYPHENIDYL HYDROCHLORIDE
  17. ACETYLCYSTEINE. [Concomitant]
     Active Substance: ACETYLCYSTEINE
  18. FLUOXETINE [Suspect]
     Active Substance: FLUOXETINE HYDROCHLORIDE
     Indication: SCHIZOAFFECTIVE DISORDER DEPRESSIVE TYPE
     Dosage: 40 MILLIGRAM DAILY; 20 MG 2 X 1
     Route: 048
     Dates: start: 20180104
  19. CLOZAPINE SANDOZ [Suspect]
     Active Substance: CLOZAPINE
     Dosage: 100 MG 2 + 3 SAMT 25 MG 2X2 VID BEHOV
     Dates: start: 20180122, end: 20180703
  20. DEPO-PROVERA [Concomitant]
     Active Substance: MEDROXYPROGESTERONE ACETATE
  21. HALDOL [Concomitant]
     Active Substance: HALOPERIDOL

REACTIONS (2)
  - Dizziness [Unknown]
  - Balance disorder [Unknown]

NARRATIVE: CASE EVENT DATE: 20190128
